FAERS Safety Report 7401044 (Version 4)
Quarter: 2015Q2

REPORT INFORMATION
  Report Type: Spontaneous
  Country: US (occurrence: US)
  Receive Date: 20100527
  Receipt Date: 20150524
  Transmission Date: 20150821
  Serious: No
  Sender: FDA-Public Use
  Company Number: US-JNJFOC-20100505659

PATIENT
  Sex: Male
  Weight: 78.02 kg

DRUGS (2)
  1. DURAGESIC [Suspect]
     Active Substance: FENTANYL
     Indication: BACK PAIN
     Route: 062
     Dates: start: 2008
  2. PAXIL [Concomitant]
     Active Substance: PAROXETINE HYDROCHLORIDE
     Indication: BACK PAIN
     Dosage: ONE PER DAY AT BEDTIME
     Route: 048

REACTIONS (4)
  - Abasia [Not Recovered/Not Resolved]
  - Product packaging quantity issue [Unknown]
  - Drug dose omission [Not Recovered/Not Resolved]
  - Pain [Not Recovered/Not Resolved]

NARRATIVE: CASE EVENT DATE: 2010
